FAERS Safety Report 24837052 (Version 2)
Quarter: 2025Q3

REPORT INFORMATION
  Report Type: Spontaneous
  Country: US (occurrence: US)
  Receive Date: 20250113
  Receipt Date: 20250728
  Transmission Date: 20251020
  Serious: No
  Sender: IPSEN BIOPHARMACEUTICALS, INC.
  Company Number: US-IPSEN Group, Research and Development-2025-00431

PATIENT
  Sex: Female

DRUGS (2)
  1. IQIRVO [Suspect]
     Active Substance: ELAFIBRANOR
     Indication: Primary biliary cholangitis
     Dosage: 80 MG ONCE DAILY
     Dates: start: 20241012
  2. OCALIVA [Concomitant]
     Active Substance: OBETICHOLIC ACID

REACTIONS (4)
  - Product dose omission issue [Unknown]
  - Fatigue [Unknown]
  - Alopecia [Unknown]
  - Pain [Unknown]
